FAERS Safety Report 11270721 (Version 1)
Quarter: 2015Q3

REPORT INFORMATION
  Report Type: Spontaneous
  Country: US (occurrence: US)
  Receive Date: 20150714
  Receipt Date: 20150714
  Transmission Date: 20151125
  Serious: No
  Sender: FDA-Public Use
  Company Number: US-BAYER-2015-373424

PATIENT
  Sex: Female

DRUGS (1)
  1. MIRENA [Suspect]
     Active Substance: LEVONORGESTREL
     Indication: MENORRHAGIA
     Dosage: 20 MCG/24HR, CONT
     Route: 015
     Dates: start: 20150619, end: 201506

REACTIONS (4)
  - Panic attack [Not Recovered/Not Resolved]
  - Device expulsion [None]
  - Panic attack [None]
  - Feeling jittery [None]

NARRATIVE: CASE EVENT DATE: 201506
